FAERS Safety Report 11893590 (Version 24)
Quarter: 2020Q1

REPORT INFORMATION
  Report Type: Spontaneous
  Country: US (occurrence: US)
  Receive Date: 20160106
  Receipt Date: 20200326
  Transmission Date: 20200409
  Serious: Yes (Hospitalization)
  Sender: FDA-Public Use
  Company Number: US-ACTELION PHARMACEUTICALS US, INC.-A-US2015-127621

PATIENT
  Age: 57 Year
  Sex: Female
  Weight: 63.49 kg

DRUGS (5)
  1. OPSUMIT [Suspect]
     Active Substance: MACITENTAN
     Dosage: 10 MG, QD
     Route: 048
  2. REMODULIN [Concomitant]
     Active Substance: TREPROSTINIL
  3. OPSUMIT [Suspect]
     Active Substance: MACITENTAN
     Dosage: 10 MG, QD
     Route: 048
  4. ORENITRAM [Concomitant]
     Active Substance: TREPROSTINIL
  5. OPSUMIT [Suspect]
     Active Substance: MACITENTAN
     Indication: PULMONARY HYPERTENSION
     Dosage: 10 MG, QD
     Route: 048
     Dates: start: 20151022

REACTIONS (36)
  - Infusion site warmth [Unknown]
  - Dyspnoea [Unknown]
  - Dyspnoea exertional [Recovered/Resolved]
  - Presyncope [Recovered/Resolved]
  - Gastrooesophageal reflux disease [Not Recovered/Not Resolved]
  - Oropharyngeal pain [Unknown]
  - Dehydration [Unknown]
  - Chest pain [Unknown]
  - Diarrhoea [Unknown]
  - Limb injury [Unknown]
  - Chest discomfort [Unknown]
  - Infusion site erythema [Not Recovered/Not Resolved]
  - Dizziness postural [Not Recovered/Not Resolved]
  - Concussion [Unknown]
  - Weight increased [Unknown]
  - Weight fluctuation [Unknown]
  - Abdominal discomfort [Unknown]
  - Fall [Unknown]
  - Secretion discharge [Unknown]
  - Infusion site swelling [Unknown]
  - Weight decreased [Unknown]
  - Cough [Unknown]
  - Infusion site infection [Unknown]
  - Pyrexia [Unknown]
  - Muscular weakness [Unknown]
  - Pain [Unknown]
  - Blood glucose decreased [Unknown]
  - Asthma [Recovering/Resolving]
  - Systemic lupus erythematosus [Unknown]
  - Migraine [Not Recovered/Not Resolved]
  - Vomiting [Unknown]
  - Palpitations [Unknown]
  - Infusion site pain [Unknown]
  - Feeling abnormal [Unknown]
  - Dizziness [Unknown]
  - Malaise [Unknown]

NARRATIVE: CASE EVENT DATE: 201804
